FAERS Safety Report 7455042-9 (Version None)
Quarter: 2011Q2

REPORT INFORMATION
  Report Type: 
  Country: None (occurrence: None)
  Receive Date: 20110503
  Receipt Date: 20110420
  Transmission Date: 20111010
  Serious: Yes (Other)
  Sender: FDA-Public Use
  Company Number: US-AMGEN-USASP2011020918

PATIENT
  Age: 42 Year
  Sex: Female

DRUGS (1)
  1. ENBREL [Suspect]
     Indication: RHEUMATOID ARTHRITIS
     Dosage: 50 MG, QWK
     Dates: start: 20110321, end: 20110409

REACTIONS (5)
  - WEIGHT DECREASED [None]
  - PANCREATITIS [None]
  - RHEUMATOID ARTHRITIS [None]
  - CANDIDIASIS [None]
  - ABDOMINAL PAIN UPPER [None]
